FAERS Safety Report 7185908-9 (Version None)
Quarter: 2010Q4

REPORT INFORMATION
  Report Type: 
  Country: None (occurrence: None)
  Receive Date: 20101222
  Receipt Date: 20101217
  Transmission Date: 20110411
  Serious: Yes (Other)
  Sender: FDA-Public Use
  Company Number: PHHY2010AU85681

PATIENT
  Age: 74 Year
  Sex: Male

DRUGS (4)
  1. MIRTAZAPINE [Suspect]
     Dosage: 15 MG
  2. MIRTAZAPINE [Suspect]
     Dosage: 30 MG, BID
  3. OLANZAPINE [Suspect]
     Dosage: 2.5 MG
  4. OLANZAPINE [Suspect]
     Dosage: 2.5 MG, BID

REACTIONS (7)
  - AGITATION [None]
  - BLOOD CREATINE PHOSPHOKINASE INCREASED [None]
  - BRADYKINESIA [None]
  - CONFUSIONAL STATE [None]
  - HALLUCINATIONS, MIXED [None]
  - HYPERTONIA [None]
  - PARKINSONISM [None]
